FAERS Safety Report 6108642-2 (Version None)
Quarter: 2009Q1

REPORT INFORMATION
  Report Type: 
  Country: None (occurrence: None)
  Receive Date: 20090305
  Receipt Date: 20090224
  Transmission Date: 20090719
  Serious: Yes (Hospitalization)
  Sender: FDA-Public Use
  Company Number: A-CH2009-23862

PATIENT
  Age: 69 Year
  Sex: Female
  Weight: 63 kg

DRUGS (6)
  1. TRACLEER [Suspect]
     Indication: PULMONARY HYPERTENSION
     Dosage: 125 MG, BID, ORAL, 62.5 MG,  BID, ORAL
     Route: 048
     Dates: start: 20081030, end: 20081202
  2. TRACLEER [Suspect]
     Indication: PULMONARY HYPERTENSION
     Dosage: 125 MG, BID, ORAL, 62.5 MG,  BID, ORAL
     Route: 048
     Dates: start: 20081203, end: 20090211
  3. LASIX [Concomitant]
  4. ALDACTONE [Concomitant]
  5. LEVOTHYROXINE SODIUM [Concomitant]
  6. NEXIUM (ESOMEPRAZOLE SODIUM) [Concomitant]

REACTIONS (5)
  - ABDOMINAL PAIN [None]
  - GASTROINTESTINAL HAEMORRHAGE [None]
  - NAUSEA [None]
  - PULMONARY OEDEMA [None]
  - WEIGHT INCREASED [None]
